FAERS Safety Report 4809321-1 (Version None)
Quarter: 2005Q4

REPORT INFORMATION
  Report Type: 
  Country: None (occurrence: None)
  Receive Date: 20051021
  Receipt Date: 20020605
  Transmission Date: 20060501
  Serious: Yes (Hospitalization)
  Sender: FDA-Public Use
  Company Number: USA020616681

PATIENT
  Age: 63 Year
  Sex: Female
  Weight: 57 kg

DRUGS (11)
  1. ZYPREXA [Suspect]
     Indication: PSYCHOTIC DISORDER
     Dosage: 25 MG/DAY
     Dates: start: 20001101
  2. ZYPREXA [Suspect]
     Indication: SCHIZOPHRENIA
     Dosage: 25 MG/DAY
     Dates: start: 20001101
  3. ASPIRIN [Concomitant]
  4. CALCIUM WITH VITAMIN D [Concomitant]
  5. FIBER [Concomitant]
  6. MEDROXYPROGESTERONE [Concomitant]
  7. PREMARIN [Concomitant]
  8. BUPROPION HYDROCHLORIDE [Concomitant]
  9. PREVACID [Concomitant]
  10. THIORIDAZINE HCL [Concomitant]
  11. TOPAMAX [Concomitant]

REACTIONS (5)
  - ABNORMAL BEHAVIOUR [None]
  - HYPOTHYROIDISM [None]
  - PRESCRIBED OVERDOSE [None]
  - THERAPY NON-RESPONDER [None]
  - WHITE BLOOD CELL COUNT DECREASED [None]
